FAERS Safety Report 5794851-9 (Version None)
Quarter: 2008Q2

REPORT INFORMATION
  Report Type: 
  Country: None (occurrence: None)
  Receive Date: 20080630
  Receipt Date: 20080624
  Transmission Date: 20081010
  Serious: Yes (Hospitalization, Other)
  Sender: FDA-Public Use
  Company Number: US-AVENTIS-200813921US

PATIENT
  Sex: Male
  Weight: 77.1 kg

DRUGS (5)
  1. LANTUS [Suspect]
     Dates: start: 20071001
  2. LANTUS [Suspect]
  3. LANTUS [Suspect]
  4. OPTICLIK (INSULIN INJECTION PEN) [Suspect]
     Dates: start: 20071001
  5. ZYRTEC [Concomitant]
     Dosage: DOSE: UNK

REACTIONS (8)
  - CONVULSION [None]
  - HYPOGLYCAEMIC SEIZURE [None]
  - INJECTION SITE HAEMORRHAGE [None]
  - LOSS OF CONSCIOUSNESS [None]
  - MUSCLE SPASMS [None]
  - TONGUE BITING [None]
  - TONGUE HAEMORRHAGE [None]
  - TREMOR [None]
